FAERS Safety Report 11090476 (Version 1)
Quarter: 2015Q2

REPORT INFORMATION
  Report Type: Spontaneous
  Country: JP (occurrence: JP)
  Receive Date: 20150505
  Receipt Date: 20150505
  Transmission Date: 20150821
  Serious: Yes (Other)
  Sender: FDA-Public Use
  Company Number: JP-JNJFOC-20150420843

PATIENT

DRUGS (2)
  1. DUROTEP MT PATCH [Suspect]
     Active Substance: FENTANYL
     Indication: PAIN
     Route: 062
  2. FENTANYL CITRATE. [Interacting]
     Active Substance: FENTANYL CITRATE
     Indication: PAIN
     Route: 042

REACTIONS (20)
  - Respiratory depression [Unknown]
  - Hepatic function abnormal [Unknown]
  - Vomiting [Unknown]
  - Somnolence [Unknown]
  - Constipation [Unknown]
  - Delirium [Unknown]
  - Interstitial lung disease [Unknown]
  - Drug interaction [Unknown]
  - Ileus paralytic [Unknown]
  - Dyspnoea [Unknown]
  - Withdrawal syndrome [Unknown]
  - Intestinal obstruction [Unknown]
  - Decreased appetite [Unknown]
  - Altered state of consciousness [Unknown]
  - Depressed level of consciousness [Unknown]
  - Pneumonia aspiration [Unknown]
  - Nausea [Unknown]
  - Malaise [Unknown]
  - Drug withdrawal syndrome [Unknown]
  - Ileus [Unknown]
